FAERS Safety Report 7426115-1 (Version None)
Quarter: 2011Q2

REPORT INFORMATION
  Report Type: 
  Country: None (occurrence: None)
  Receive Date: 20110420
  Receipt Date: 20110408
  Transmission Date: 20111010
  Serious: Yes (Other)
  Sender: FDA-Public Use
  Company Number: PHHY2010JP86864

PATIENT
  Sex: Female
  Weight: 57 kg

DRUGS (9)
  1. INTERFERON ALFA [Concomitant]
     Indication: METASTATIC RENAL CELL CARCINOMA
     Dosage: 3000000 DF,
     Dates: start: 20071001, end: 20080501
  2. SORAFENIB TOSILATE [Concomitant]
     Indication: METASTATIC RENAL CELL CARCINOMA
     Dosage: 800 MG, UNK
     Route: 048
     Dates: start: 20080930, end: 20100329
  3. BLOPRESS [Concomitant]
     Dosage: 4 MG, UNK
     Route: 048
     Dates: start: 20100402, end: 20100620
  4. AFINITOR [Suspect]
     Dosage: 10 MG, DAILY
     Route: 048
     Dates: start: 20100824
  5. ADALAT [Concomitant]
     Dosage: 40 MG, UNK
     Route: 048
     Dates: start: 20100402
  6. OXYCONTIN [Concomitant]
     Indication: METASTATIC RENAL CELL CARCINOMA
     Dosage: 10 MG, UNK
     Route: 048
     Dates: start: 20100402, end: 20100905
  7. SUNITINIB MALATE [Concomitant]
     Indication: METASTATIC RENAL CELL CARCINOMA
     Dosage: 50 MG,
     Route: 048
     Dates: start: 20080716, end: 20080801
  8. AFINITOR [Suspect]
     Indication: METASTATIC RENAL CELL CARCINOMA
     Dosage: 10 MG, DAILY
     Route: 048
     Dates: start: 20100402, end: 20100722
  9. ZOMETA [Concomitant]
     Indication: METASTATIC RENAL CELL CARCINOMA
     Route: 041
     Dates: start: 20100402

REACTIONS (2)
  - HYPOKALAEMIA [None]
  - LYMPHOCYTE COUNT DECREASED [None]
